FAERS Safety Report 20579288 (Version 1)
Quarter: 2022Q1

REPORT INFORMATION
  Report Type: Report from Study
  Country: GB (occurrence: GB)
  Receive Date: 20220310
  Receipt Date: 20220310
  Transmission Date: 20220423
  Serious: Yes (Other)
  Sender: FDA-Public Use
  Company Number: GB-NOVARTISPH-NVSC2022GB004624

PATIENT
  Sex: Female

DRUGS (1)
  1. RIBOCICLIB [Suspect]
     Active Substance: RIBOCICLIB
     Indication: Breast cancer
     Dosage: UNK UNK, QD (TABLET)
     Route: 048
     Dates: start: 20211213

REACTIONS (8)
  - Hepatic failure [Recovering/Resolving]
  - Epistaxis [Unknown]
  - Dyspnoea [Unknown]
  - Fatigue [Unknown]
  - Alopecia [Unknown]
  - Cough [Unknown]
  - Constipation [Recovering/Resolving]
  - Dyspepsia [Recovering/Resolving]
